FAERS Safety Report 8390852-5 (Version None)
Quarter: 2012Q2

REPORT INFORMATION
  Report Type: 
  Country: None (occurrence: None)
  Receive Date: 20120529
  Receipt Date: 20120518
  Transmission Date: 20120825
  Serious: Yes (Hospitalization)
  Sender: FDA-Public Use
  Company Number: US-ASTRAZENECA-2012SE32383

PATIENT
  Age: 49 Year
  Sex: Male
  Weight: 73.2 kg

DRUGS (2)
  1. VANDETANIB [Suspect]
     Route: 048
     Dates: start: 20120517, end: 20120517
  2. MIDAZOLAM [Suspect]
     Route: 048
     Dates: start: 20120502, end: 20120502

REACTIONS (1)
  - ECG SIGNS OF MYOCARDIAL ISCHAEMIA [None]
